FAERS Safety Report 12839900 (Version 1)
Quarter: 2016Q4

REPORT INFORMATION
  Report Type: Spontaneous
  Country: US (occurrence: US)
  Receive Date: 20161011
  Receipt Date: 20161011
  Transmission Date: 20170207
  Serious: No
  Sender: FDA-Public Use
  Company Number: None

PATIENT
  Age: 48 Year
  Sex: Female
  Weight: 76.5 kg

DRUGS (6)
  1. LEVOTHYROXINE. [Concomitant]
     Active Substance: LEVOTHYROXINE
  2. ALBUTEROL. [Concomitant]
     Active Substance: ALBUTEROL
  3. PREVICID [Concomitant]
  4. MULTI DAILY VITAMIN [Concomitant]
  5. BP MEDS [Concomitant]
  6. COPAXONE [Suspect]
     Active Substance: GLATIRAMER ACETATE
     Indication: MULTIPLE SCLEROSIS
     Dosage: OTHER OTHER SUBCUTANEOUS
     Route: 058

REACTIONS (10)
  - Body temperature decreased [None]
  - Dizziness [None]
  - Loss of consciousness [None]
  - Hypersomnia [None]
  - Nausea [None]
  - Injection site pain [None]
  - Chills [None]
  - Vomiting [None]
  - Arthralgia [None]
  - Crying [None]

NARRATIVE: CASE EVENT DATE: 20161003
